FAERS Safety Report 8825878 (Version 2)
Quarter: 2012Q4

REPORT INFORMATION
  Report Type: 
  Country: US (occurrence: US)
  Receive Date: 20121005
  Receipt Date: 20121120
  Transmission Date: 20130627
  Serious: Yes (Other)
  Sender: FDA-Public Use
  Company Number: US-BAYER-2012-104451

PATIENT
  Age: 37 Year
  Sex: Female

DRUGS (1)
  1. MIRENA [Suspect]
     Dosage: 20 mcg/24hr, CONT
     Route: 015
     Dates: start: 20120627, end: 20120723

REACTIONS (9)
  - Depression [Recovering/Resolving]
  - Asthenia [Recovering/Resolving]
  - Crying [Recovering/Resolving]
  - Constipation [Recovering/Resolving]
  - Abdominal distension [Recovering/Resolving]
  - Screaming [Recovering/Resolving]
  - Feeling abnormal [Recovering/Resolving]
  - Vaginal haemorrhage [Recovering/Resolving]
  - Adverse event [Recovering/Resolving]
